FAERS Safety Report 8773138 (Version 1)
Quarter: 2012Q4

REPORT INFORMATION
  Report Type: 
  Country: JP (occurrence: JP)
  Receive Date: 20120907
  Receipt Date: 20120907
  Transmission Date: 20130627
  Serious: Yes (Death)
  Sender: FDA-Public Use
  Company Number: JP-ROCHE-1090889

PATIENT
  Age: 63 Year
  Sex: Female
  Weight: 50 kg

DRUGS (7)
  1. AVASTIN [Suspect]
     Indication: BREAST CANCER METASTATIC
     Route: 041
     Dates: start: 20120706, end: 20120706
  2. TAXOL [Concomitant]
     Indication: BREAST CANCER METASTATIC
     Route: 041
     Dates: start: 20120706, end: 20120706
  3. NIPOLAZIN [Concomitant]
     Route: 048
     Dates: start: 20120706, end: 20120706
  4. DECADRON [Concomitant]
     Route: 041
     Dates: start: 20120706, end: 20120706
  5. NASEA [Concomitant]
     Route: 041
     Dates: start: 20120706, end: 20120706
  6. GASTER [Concomitant]
     Route: 041
     Dates: start: 20120706, end: 20120706
  7. ZOMETA [Concomitant]
     Route: 041
     Dates: start: 20120706, end: 20120706

REACTIONS (4)
  - Febrile neutropenia [Fatal]
  - Pancytopenia [Fatal]
  - Pneumonia [Fatal]
  - Infection [Fatal]
